FAERS Safety Report 4398648-6 (Version None)
Quarter: 2004Q3

REPORT INFORMATION
  Report Type: 
  Country: None (occurrence: None)
  Receive Date: 20040715
  Receipt Date: 20031120
  Transmission Date: 20050211
  Serious: No
  Sender: FDA-Public Use
  Company Number: FR-AMGEN-US058777

PATIENT
  Sex: Male

DRUGS (3)
  1. ENBREL [Suspect]
     Indication: RHEUMATOID ARTHRITIS
     Route: 064
     Dates: start: 20030829, end: 20030922
  2. CORTANCYL [Suspect]
     Route: 048
  3. VOLTAREN [Suspect]
     Route: 048
     Dates: end: 20030922

REACTIONS (1)
  - DRUG EXPOSURE DURING PREGNANCY [None]
